FAERS Safety Report 20022956 (Version 1)
Quarter: 2021Q4

REPORT INFORMATION
  Report Type: Spontaneous
  Country: US (occurrence: US)
  Receive Date: 20211102
  Receipt Date: 20211102
  Transmission Date: 20220303
  Serious: No
  Sender: FDA-Public Use
  Company Number: US-SA-SAC20211028001305

PATIENT
  Age: 48 Year
  Sex: Female

DRUGS (11)
  1. DUPIXENT [Suspect]
     Active Substance: DUPILUMAB
     Indication: Asthma
     Dosage: 300 MG, QOW
     Route: 058
     Dates: start: 20210305
  2. QUETIAPINE [Concomitant]
     Active Substance: QUETIAPINE
  3. PROGESTERONE [Concomitant]
     Active Substance: PROGESTERONE
  4. RIZATRIPTAN [Concomitant]
     Active Substance: RIZATRIPTAN
  5. AMANTADINE [Concomitant]
     Active Substance: AMANTADINE
  6. MEMANTINE [Concomitant]
     Active Substance: MEMANTINE
  7. HYDROXYZINE HYDROCHLORIDE [Concomitant]
     Active Substance: HYDROXYZINE HYDROCHLORIDE
  8. CARBIDOPA\LEVODOPA [Concomitant]
     Active Substance: CARBIDOPA\LEVODOPA
  9. LEVOTHYROXINE [Concomitant]
     Active Substance: LEVOTHYROXINE
  10. BACLOFEN [Concomitant]
     Active Substance: BACLOFEN
  11. DICLOFENAC [Concomitant]
     Active Substance: DICLOFENAC

REACTIONS (3)
  - Adverse drug reaction [Not Recovered/Not Resolved]
  - Product dose omission issue [Unknown]
  - Product use issue [Unknown]

NARRATIVE: CASE EVENT DATE: 20210101
